FAERS Safety Report 6140590-4 (Version None)
Quarter: 2009Q2

REPORT INFORMATION
  Report Type: 
  Country: None (occurrence: None)
  Receive Date: 20090402
  Receipt Date: 20090327
  Transmission Date: 20091009
  Serious: Yes (Hospitalization)
  Sender: FDA-Public Use
  Company Number: DE-JNJFOC-20090307205

PATIENT
  Age: 38 Year
  Sex: Male
  Weight: 77 kg

DRUGS (2)
  1. IBUPROFEN [Suspect]
     Indication: UPPER RESPIRATORY TRACT INFECTION
     Route: 048
  2. GRIPPOSTAD [Concomitant]

REACTIONS (5)
  - BLOOD PRESSURE INCREASED [None]
  - CHEST DISCOMFORT [None]
  - DIZZINESS [None]
  - PALPITATIONS [None]
  - PRESYNCOPE [None]
